FAERS Safety Report 23340709 (Version 1)
Quarter: 2023Q4

REPORT INFORMATION
  Report Type: Spontaneous
  Country: FR (occurrence: FR)
  Receive Date: 20231227
  Receipt Date: 20231227
  Transmission Date: 20240110
  Serious: Yes (Disabling)
  Sender: FDA-Public Use
  Company Number: None

PATIENT
  Age: 15 Year
  Sex: Male
  Weight: 46 kg

DRUGS (1)
  1. SAIZEN [Suspect]
     Active Substance: SOMATROPIN
     Indication: Growth retardation
     Dosage: STRENGTH: 8 MG/2.7 ML, 1.7 MG/DAY
     Route: 058
     Dates: start: 20211001

REACTIONS (1)
  - Avulsion fracture [Recovering/Resolving]

NARRATIVE: CASE EVENT DATE: 20230608
